FAERS Safety Report 9786219 (Version 3)
Quarter: 2014Q2

REPORT INFORMATION
  Report Type: Report from Study
  Country: JP (occurrence: JP)
  Receive Date: 20131227
  Receipt Date: 20140418
  Transmission Date: 20141212
  Serious: Yes (Hospitalization, Other)
  Sender: FDA-Public Use
  Company Number: JP-AMGEN-JPNCT2013090716

PATIENT
  Age: 96 Year
  Sex: Female
  Weight: 39 kg

DRUGS (13)
  1. DARBEPOETIN ALFA [Suspect]
     Indication: NEPHROGENIC ANAEMIA
     Dosage: 30 MG, Q2WK
     Route: 058
     Dates: start: 20111102
  2. AVAPRO [Concomitant]
     Dosage: UNK
     Route: 048
  3. LASIX                              /00032601/ [Concomitant]
     Indication: RENAL FAILURE CHRONIC
     Dosage: UNK
     Route: 048
  4. LUPRAC [Concomitant]
     Indication: RENAL FAILURE CHRONIC
     Dosage: UNK
     Route: 048
  5. BAYASPIRIN [Concomitant]
     Dosage: UNK
     Route: 048
  6. MUCOSTA [Concomitant]
     Dosage: UNK
     Route: 048
  7. GRAMALIL [Concomitant]
     Dosage: UNK
     Route: 048
  8. ZYLORIC [Concomitant]
     Dosage: UNK
     Route: 048
  9. OMEPRAL                            /00661201/ [Concomitant]
     Dosage: UNK
     Route: 048
  10. PREMINENT [Concomitant]
     Dosage: UNK
     Route: 048
  11. OLMETEC [Concomitant]
     Dosage: UNK
     Route: 048
  12. AZILVA [Concomitant]
     Dosage: UNK
     Route: 048
  13. NORVASC [Concomitant]
     Dosage: UNK
     Route: 048

REACTIONS (12)
  - Bronchitis [Recovering/Resolving]
  - Blood creatinine increased [Recovering/Resolving]
  - Decreased appetite [Recovering/Resolving]
  - Blood pressure increased [Recovering/Resolving]
  - Dehydration [Recovered/Resolved]
  - Decreased appetite [Recovered/Resolved]
  - Pneumonia [Recovered/Resolved]
  - Diarrhoea [Recovering/Resolving]
  - Bronchitis [Recovering/Resolving]
  - Conjunctivitis [Recovered/Resolved]
  - Constipation [Recovered/Resolved]
  - Skin erosion [Recovered/Resolved]
